FAERS Safety Report 19689377 (Version 1)
Quarter: 2021Q3

REPORT INFORMATION
  Report Type: Report from Study
  Country: None (occurrence: JP)
  Receive Date: 20210812
  Receipt Date: 20210812
  Transmission Date: 20211014
  Serious: Yes (Hospitalization)
  Sender: FDA-Public Use
  Company Number: JP-RECORDATI RARE DISEASE INC.-2021003134

PATIENT
  Age: 3 Day
  Sex: Female
  Weight: 1.32 kg

DRUGS (8)
  1. NEOPROFEN [Suspect]
     Active Substance: IBUPROFEN LYSINE
     Indication: PATENT DUCTUS ARTERIOSUS
     Dosage: 13 MILLIGRAM
     Route: 042
     Dates: start: 20201027, end: 20201027
  2. MEYLON [Concomitant]
     Active Substance: SODIUM BICARBONATE
     Indication: METABOLIC ACIDOSIS
     Dosage: UNK
     Route: 042
     Dates: start: 20201027, end: 20201030
  3. NEOPROFEN [Suspect]
     Active Substance: IBUPROFEN LYSINE
     Dosage: 7 MILLIGRAM
     Route: 042
     Dates: start: 20201028, end: 20201028
  4. FENTANYL. [Concomitant]
     Active Substance: FENTANYL
     Indication: SEDATION
     Dosage: UNK
     Route: 042
     Dates: start: 20201026, end: 20201028
  5. PLEAMIN P [Concomitant]
     Indication: NUTRITIONAL SUPPLEMENTATION
     Dosage: UNK
     Route: 042
     Dates: start: 20201027, end: 20201109
  6. INTRALIPOS [Concomitant]
     Active Substance: SOYBEAN OIL
     Indication: NUTRITIONAL SUPPLEMENTATION
     Dosage: UNK
     Route: 042
     Dates: start: 20201027, end: 20201109
  7. KAYTWO N [Concomitant]
     Active Substance: MENATETRENONE
     Indication: VITAMIN SUPPLEMENTATION
     Dosage: UNK
     Route: 042
     Dates: start: 20201026, end: 20201027
  8. NEOPROFEN [Suspect]
     Active Substance: IBUPROFEN LYSINE
     Dosage: 7 MILLIGRAM
     Route: 042
     Dates: start: 20201029, end: 20201029

REACTIONS (3)
  - Metabolic acidosis [Recovered/Resolved]
  - Jaundice [Recovered/Resolved]
  - Laryngeal stenosis [Recovering/Resolving]

NARRATIVE: CASE EVENT DATE: 20201029
